FAERS Safety Report 14136898 (Version 5)
Quarter: 2018Q2

REPORT INFORMATION
  Report Type: Report from Study
  Country: US (occurrence: US)
  Receive Date: 20171027
  Receipt Date: 20180502
  Transmission Date: 20180711
  Serious: Yes (Other)
  Sender: FDA-Public Use
  Company Number: US-AMGEN-USASL2017150794

PATIENT
  Age: 80 Year
  Sex: Female
  Weight: 53.52 kg

DRUGS (3)
  1. REPATHA [Suspect]
     Active Substance: EVOLOCUMAB
     Indication: HYPERLIPIDAEMIA
     Dosage: 140 MG, Q2WK
     Route: 065
     Dates: start: 201604
  2. REPATHA [Suspect]
     Active Substance: EVOLOCUMAB
     Indication: BLOOD CHOLESTEROL INCREASED
  3. REPATHA [Suspect]
     Active Substance: EVOLOCUMAB
     Indication: TYPE IIA HYPERLIPIDAEMIA
     Dosage: 140 MG, Q2WK
     Route: 065
     Dates: start: 2017

REACTIONS (25)
  - Tendonitis [Unknown]
  - Blood pressure increased [Recovering/Resolving]
  - Muscle spasms [Not Recovered/Not Resolved]
  - Weight decreased [Recovered/Resolved]
  - Osteoarthritis [Not Recovered/Not Resolved]
  - Stress [Unknown]
  - Sneezing [Unknown]
  - Osteoporosis [Not Recovered/Not Resolved]
  - Gait inability [Unknown]
  - Blood glucose increased [Unknown]
  - Rheumatoid arthritis [Not Recovered/Not Resolved]
  - Nasal congestion [Unknown]
  - Muscle tone disorder [Unknown]
  - Dysphonia [Unknown]
  - Epistaxis [Unknown]
  - Ventricular tachycardia [Unknown]
  - Oxygen saturation decreased [Unknown]
  - Sinus disorder [Unknown]
  - Secretion discharge [Unknown]
  - Nasopharyngitis [Recovered/Resolved]
  - Tendon rupture [Unknown]
  - Atrial fibrillation [Unknown]
  - Sleep apnoea syndrome [Not Recovered/Not Resolved]
  - Musculoskeletal discomfort [Unknown]
  - Rhinorrhoea [Unknown]

NARRATIVE: CASE EVENT DATE: 201604
